FAERS Safety Report 12143652 (Version 1)
Quarter: 2016Q1

REPORT INFORMATION
  Report Type: Spontaneous
  Country: US (occurrence: US)
  Receive Date: 20160304
  Receipt Date: 20160304
  Transmission Date: 20160526
  Serious: No
  Sender: FDA-Public Use
  Company Number: US-JNJFOC-20160117200

PATIENT
  Age: 51 Year
  Sex: Male
  Weight: 77.11 kg

DRUGS (4)
  1. ZYRTEC 10MG IR TABLET [Suspect]
     Active Substance: CETIRIZINE HYDROCHLORIDE
     Indication: DRY SKIN
     Dosage: 1 TABLET, 1 TIME DAILY, FOR 3 TO 4 MONTHS
     Route: 048
  2. ALL OTHER THERAPEUTIC PRODUCTS [Concomitant]
     Active Substance: UNSPECIFIED INGREDIENT
     Indication: SINUS DISORDER
     Dosage: OVER THE LAST FEW WEEKS
     Route: 065
  3. ZYRTEC 10MG IR TABLET [Suspect]
     Active Substance: CETIRIZINE HYDROCHLORIDE
     Indication: DRY SKIN
     Dosage: 1 TABLET, 1 TIME DAILY, FOR 3 TO 4 MONTHS
     Route: 048
     Dates: start: 2015
  4. ZYRTEC 10MG IR TABLET [Suspect]
     Active Substance: CETIRIZINE HYDROCHLORIDE
     Indication: DRY SKIN
     Dosage: 1 TABLET, 1 TIME DAILY, FOR 3 TO 4 MONTHS
     Route: 048

REACTIONS (3)
  - Off label use [Not Recovered/Not Resolved]
  - Product use issue [Not Recovered/Not Resolved]
  - Drug screen positive [Not Recovered/Not Resolved]

NARRATIVE: CASE EVENT DATE: 2015
